FAERS Safety Report 4577311-2 (Version None)
Quarter: 2005Q1

REPORT INFORMATION
  Report Type: 
  Country: None (occurrence: None)
  Receive Date: 20050210
  Receipt Date: 20050131
  Transmission Date: 20050727
  Serious: Yes (Other)
  Sender: FDA-Public Use
  Company Number: US-GLAXOSMITHKLINE-A0542990A

PATIENT
  Age: 65 Year
  Sex: Female
  Weight: 138 kg

DRUGS (6)
  1. ECOTRIN ADULT LOW STRENGTH TABLETS [Suspect]
     Route: 048
     Dates: start: 20000101
  2. LIPITOR [Concomitant]
     Indication: BLOOD CHOLESTEROL INCREASED
     Route: 048
  3. LISINOPRIL [Concomitant]
     Route: 048
  4. HIGH BLOOD PRESSURE PILL [Concomitant]
     Route: 048
  5. ARTHRITIS MEDICATION [Concomitant]
     Indication: ARTHRITIS
     Route: 048
  6. ASTHMAHALER [Concomitant]
     Indication: ASTHMA
     Route: 055

REACTIONS (4)
  - BORDERLINE GLAUCOMA [None]
  - DIABETES MELLITUS [None]
  - EPISTAXIS [None]
  - HYPERSENSITIVITY [None]
